FAERS Safety Report 4641977-9 (Version None)
Quarter: 2005Q2

REPORT INFORMATION
  Report Type: 
  Country: None (occurrence: None)
  Receive Date: 20050421
  Receipt Date: 20050407
  Transmission Date: 20051028
  Serious: Yes (Hospitalization, Other)
  Sender: FDA-Public Use
  Company Number: 2005057290

PATIENT
  Age: 48 Year
  Sex: Female
  Weight: 95.2554 kg

DRUGS (9)
  1. BEXTRA [Suspect]
     Indication: RHEUMATOID ARTHRITIS
     Dosage: (1 IN 1 D), ORAL
     Route: 048
     Dates: end: 20020901
  2. LANSOPRAZOLE [Concomitant]
  3. MONTELUKAST SODIUM (MONTELUKAST SODIUM) [Concomitant]
  4. LEFLUNOMIDE [Concomitant]
  5. ANAKINRA (ANAKINRA) [Concomitant]
  6. INSULIN LISPRO (INSULIN LISPRO) [Concomitant]
  7. INSULIN [Concomitant]
  8. FENOFIBRATE [Concomitant]
  9. METHOTREXATE [Concomitant]

REACTIONS (5)
  - ABDOMINAL PAIN UPPER [None]
  - DIABETES MELLITUS [None]
  - DYSPEPSIA [None]
  - HERNIA REPAIR [None]
  - POST PROCEDURAL COMPLICATION [None]
